FAERS Safety Report 5084270-5 (Version None)
Quarter: 2006Q3

REPORT INFORMATION
  Report Type: 
  Country: None (occurrence: None)
  Receive Date: 20060816
  Receipt Date: 20060802
  Transmission Date: 20061208
  Serious: Yes (Hospitalization)
  Sender: FDA-Public Use
  Company Number: PAR_0729_2006

PATIENT

DRUGS (1)
  1. IMIPRAMINE HCL [Suspect]
     Indication: MIGRAINE
     Dosage: DF PO
     Route: 048

REACTIONS (3)
  - DRUG LEVEL DECREASED [None]
  - DRUG WITHDRAWAL SYNDROME [None]
  - INTRACRANIAL ANEURYSM [None]
